FAERS Safety Report 11455809 (Version 3)
Quarter: 2015Q3

REPORT INFORMATION
  Report Type: Spontaneous
  Country: SE (occurrence: SE)
  Receive Date: 20150903
  Receipt Date: 20150929
  Transmission Date: 20151125
  Serious: Yes (Hospitalization, Other)
  Sender: FDA-Public Use
  Company Number: SE-PFIZER INC-2015293322

PATIENT
  Age: 82 Year
  Sex: Male

DRUGS (12)
  1. ALVEDON [Suspect]
     Active Substance: ACETAMINOPHEN
     Indication: BACK PAIN
     Dosage: UNK
     Route: 065
     Dates: start: 20140609
  2. SOBRIL [Concomitant]
     Active Substance: OXAZEPAM
     Dosage: UNK
  3. BRICANYL [Concomitant]
     Active Substance: TERBUTALINE SULFATE
     Dosage: UNK
  4. SIMVASTATIN. [Suspect]
     Active Substance: SIMVASTATIN
     Dosage: UNK
     Route: 065
     Dates: start: 20111201, end: 20120725
  5. AMLODIPINE [Concomitant]
     Active Substance: AMLODIPINE BESYLATE
     Dosage: UNK
  6. SIMVASTATIN. [Suspect]
     Active Substance: SIMVASTATIN
     Dosage: UNK
     Route: 065
     Dates: start: 20011201, end: 20111201
  7. CITODON [Suspect]
     Active Substance: ACETAMINOPHEN\CODEINE PHOSPHATE
     Indication: PAIN
     Dosage: UNK
     Route: 065
     Dates: start: 20150716
  8. TRIATEC [Suspect]
     Active Substance: RAMIPRIL
     Dosage: UNK
     Route: 048
     Dates: start: 20130115
  9. MOLLIPECT [Concomitant]
     Active Substance: BROMHEXINE
     Dosage: UNK
  10. SIMVASTATIN. [Suspect]
     Active Substance: SIMVASTATIN
     Dosage: 40 MG, DAILY
     Route: 065
     Dates: start: 20010716, end: 20111201
  11. WARAN [Concomitant]
     Active Substance: WARFARIN SODIUM
     Dosage: UNK
  12. METOPROLOL [Concomitant]
     Active Substance: METOPROLOL
     Dosage: UNK

REACTIONS (4)
  - Liver function test abnormal [Unknown]
  - Fall [Unknown]
  - Hepatic cirrhosis [Unknown]
  - Haemorrhage [Unknown]

NARRATIVE: CASE EVENT DATE: 20150725
